FAERS Safety Report 9695327 (Version 1)
Quarter: 2013Q4

REPORT INFORMATION
  Report Type: Spontaneous
  Country: EE (occurrence: EE)
  Receive Date: 20131119
  Receipt Date: 20131119
  Transmission Date: 20140711
  Serious: Yes (Life-Threatening, Hospitalization)
  Sender: FDA-Public Use
  Company Number: EE-BAYER-2013-140588

PATIENT
  Age: 65 Year
  Sex: Male

DRUGS (8)
  1. ULTRAVIST [Suspect]
     Indication: DIAGNOSTIC PROCEDURE
     Dosage: 120 ML, UNK
     Route: 042
     Dates: start: 20131017, end: 20131017
  2. CEFUROXIME [Concomitant]
     Indication: PNEUMONIA
     Dosage: 1.5 G, TID
     Route: 042
     Dates: start: 20131009, end: 20131011
  3. CEFOTAXIME [Concomitant]
     Indication: PNEUMONIA
     Dosage: 2 G, TID
     Route: 042
     Dates: start: 20131012, end: 20131018
  4. CLARITHROMYCIN [Concomitant]
     Indication: PNEUMONIA
     Dosage: 500 MG, BID
     Route: 048
     Dates: start: 20131009, end: 20131014
  5. OMEP [Concomitant]
     Indication: GASTRITIS
     Dosage: 20 MG, BID
     Route: 048
     Dates: start: 20131009, end: 20131015
  6. ESOMEPRAZOLE [Concomitant]
     Indication: GASTRITIS
     Dosage: 40 MG, QD
     Route: 042
     Dates: start: 20131016
  7. AMINOVEN [Concomitant]
     Dosage: 500 ML, UNK
     Route: 042
  8. SODIUM CHLORIDE [Concomitant]
     Dosage: 250 ML, UNK
     Route: 042

REACTIONS (1)
  - Renal failure acute [Not Recovered/Not Resolved]
